FAERS Safety Report 5576002-9 (Version None)
Quarter: 2007Q4

REPORT INFORMATION
  Report Type: 
  Country: None (occurrence: None)
  Receive Date: 20071228
  Receipt Date: 20071220
  Transmission Date: 20080405
  Serious: Yes (Other)
  Sender: FDA-Public Use
  Company Number: US-JNJFOC-20071205359

PATIENT
  Age: 64 Year
  Sex: Female
  Weight: 64.86 kg

DRUGS (2)
  1. TYLENOL (CAPLET) [Suspect]
  2. TYLENOL (CAPLET) [Suspect]
     Indication: PROCEDURAL PAIN
     Dosage: 650 MG EVERY 4-6 HOURS

REACTIONS (2)
  - HYPERTENSION [None]
  - INCORRECT DRUG ADMINISTRATION DURATION [None]
